FAERS Safety Report 26065343 (Version 4)
Quarter: 2025Q4

REPORT INFORMATION
  Report Type: Report from Study
  Country: US (occurrence: None)
  Receive Date: 20251119
  Receipt Date: 20251229
  Transmission Date: 20260117
  Serious: Yes (Other)
  Sender: UCB
  Company Number: US-UCBSA-2025071631

PATIENT
  Weight: 13.9 kg

DRUGS (5)
  1. FENFLURAMINE [Suspect]
     Active Substance: FENFLURAMINE
     Indication: Severe myoclonic epilepsy of infancy
     Dosage: 1.7 MILLILITER, 2X/DAY (BID)
     Route: 061
  2. FENFLURAMINE [Suspect]
     Active Substance: FENFLURAMINE
     Dosage: 2 MILLILITER, 2X/DAY (BID)
     Route: 061
  3. CYPROHEPTADINE [Suspect]
     Active Substance: CYPROHEPTADINE
     Indication: Product used for unknown indication
  4. VALPROIC ACID [Concomitant]
     Active Substance: VALPROIC ACID
     Indication: Epilepsy
     Dosage: 175 MILLIGRAM
  5. VALPROIC ACID [Concomitant]
     Active Substance: VALPROIC ACID
     Dosage: WEANING OFF

REACTIONS (5)
  - Seizure [Recovered/Resolved]
  - Gastrointestinal tube insertion [Recovered/Resolved]
  - Decreased appetite [Recovering/Resolving]
  - Abdominal pain upper [Unknown]
  - Behaviour disorder [Unknown]
